FAERS Safety Report 4818650-7 (Version None)
Quarter: 2005Q4

REPORT INFORMATION
  Report Type: 
  Country: None (occurrence: None)
  Receive Date: 20051101
  Receipt Date: 20051024
  Transmission Date: 20060501
  Serious: Yes (Death)
  Sender: FDA-Public Use
  Company Number: 200511671BWH

PATIENT
  Age: 61 Year
  Sex: Male
  Weight: 90.5 kg

DRUGS (15)
  1. TRASYLOL [Suspect]
     Indication: QUADRUPLE VESSEL BYPASS GRAFT
     Dosage: SEE IMAGE
     Dates: start: 20050816
  2. TRASYLOL [Suspect]
     Indication: QUADRUPLE VESSEL BYPASS GRAFT
     Dosage: SEE IMAGE
     Dates: start: 20050816
  3. TRASYLOL [Suspect]
     Indication: QUADRUPLE VESSEL BYPASS GRAFT
     Dosage: SEE IMAGE
     Dates: start: 20050816
  4. PROTAMINE [Suspect]
     Dosage: SEE IMAGE
     Route: 042
     Dates: start: 20050816
  5. PROTAMINE [Suspect]
     Dosage: SEE IMAGE
     Route: 042
     Dates: start: 20050816
  6. HEPARIN [Concomitant]
  7. CITALOPRAM [Concomitant]
  8. OMEPRAZOLE [Concomitant]
  9. SIMVASTATIN [Concomitant]
  10. OXAZEPAM [Concomitant]
  11. FENOFIBRATE [Concomitant]
  12. TOPROL-XL [Concomitant]
  13. DIOVAN HCT [Concomitant]
  14. CELL SAVER PACKED CELLS [Concomitant]
  15. KAOLIN [Concomitant]

REACTIONS (14)
  - AORTIC THROMBOSIS [None]
  - AORTIC VALVE DISEASE [None]
  - ARTERIOVENOUS GRAFT THROMBOSIS [None]
  - ATRIAL THROMBOSIS [None]
  - CARDIAC ARREST [None]
  - CARDIAC OUTPUT DECREASED [None]
  - CARDIOMEGALY [None]
  - COAGULATION TIME PROLONGED [None]
  - COAGULOPATHY [None]
  - INTRACARDIAC THROMBUS [None]
  - PROCEDURAL COMPLICATION [None]
  - PROCEDURAL HYPOTENSION [None]
  - THROMBOSIS [None]
  - VASCULAR RESISTANCE SYSTEMIC DECREASED [None]
